FAERS Safety Report 4419616-1 (Version None)
Quarter: 2004Q3

REPORT INFORMATION
  Report Type: 
  Country: None (occurrence: None)
  Receive Date: 20040809
  Receipt Date: 20040226
  Transmission Date: 20050211
  Serious: No
  Sender: FDA-Public Use
  Company Number: US-GLAXOSMITHKLINE-A0500114A

PATIENT
  Sex: Female

DRUGS (2)
  1. PAXIL [Suspect]
     Indication: ILL-DEFINED DISORDER
     Dosage: 1TAB PER DAY
     Route: 048
     Dates: start: 19990101, end: 20040214
  2. XANAX [Concomitant]

REACTIONS (1)
  - DRUG WITHDRAWAL SYNDROME [None]
